FAERS Safety Report 6380779-2 (Version None)
Quarter: 2009Q3

REPORT INFORMATION
  Report Type: 
  Country: None (occurrence: None)
  Receive Date: 20090925
  Receipt Date: 20090925
  Transmission Date: 20100115
  Serious: Yes (Other)
  Sender: FDA-Public Use
  Company Number: None

PATIENT
  Age: 45 Year
  Sex: Female
  Weight: 88.4514 kg

DRUGS (1)
  1. TOPIRAMATE [Suspect]
     Indication: BIPOLAR DISORDER
     Dosage: 1 TABLET TWICE A DAY PO
     Route: 048
     Dates: start: 20090921, end: 20090924

REACTIONS (5)
  - AMNESIA [None]
  - ANGER [None]
  - DYSPNOEA [None]
  - FATIGUE [None]
  - SUICIDAL BEHAVIOUR [None]
